FAERS Safety Report 24740514 (Version 1)
Quarter: 2024Q4

REPORT INFORMATION
  Report Type: Spontaneous
  Country: CZ (occurrence: CZ)
  Receive Date: 20241216
  Receipt Date: 20241216
  Transmission Date: 20250115
  Serious: Yes (Other)
  Sender: GLAXOSMITHKLINE
  Company Number: None

PATIENT

DRUGS (6)
  1. SERETIDE [Suspect]
     Active Substance: FLUTICASONE PROPIONATE\SALMETEROL XINAFOATE
     Indication: Asthma
     Dosage: UNK UNK, BID (50 UG/250 UG TWICE A DAY)
     Route: 065
     Dates: start: 2000, end: 2009
  2. BRICANYL [Suspect]
     Active Substance: TERBUTALINE SULFATE
     Indication: Asthma
     Dosage: UNK
     Route: 065
     Dates: start: 1997, end: 2000
  3. PULMICORT TURBUHALER [Suspect]
     Active Substance: BUDESONIDE
     Indication: Asthma
     Dosage: UNK
     Route: 065
     Dates: start: 1997, end: 2000
  4. ALVESCO [Concomitant]
     Active Substance: CICLESONIDE
     Indication: Asthma
     Dosage: UNK
     Route: 055
     Dates: end: 2009
  5. ZYRTEC [Concomitant]
     Active Substance: CETIRIZINE HYDROCHLORIDE
     Indication: Product used for unknown indication
     Dosage: UNK UNK, TID (3X DAILY)
     Route: 065
  6. ATROVENT [Concomitant]
     Active Substance: IPRATROPIUM BROMIDE
     Indication: Asthma
     Dosage: 2 DF, TID (2X2X2)
     Route: 055
     Dates: end: 2009

REACTIONS (16)
  - Therapeutic product effect decreased [Unknown]
  - Cushing^s syndrome [Not Recovered/Not Resolved]
  - Tinnitus [Unknown]
  - Chest pain [Unknown]
  - Memory impairment [Unknown]
  - Gastrointestinal tract irritation [Unknown]
  - Palpitations [Unknown]
  - Disease susceptibility [Recovered/Resolved]
  - Weight increased [Unknown]
  - Sputum retention [Unknown]
  - Muscle spasms [Unknown]
  - Diarrhoea [Recovered/Resolved]
  - Fatigue [Unknown]
  - Migraine [Recovered/Resolved]
  - Loss of consciousness [Unknown]
  - Headache [Unknown]
